FAERS Safety Report 7390326-4 (Version None)
Quarter: 2011Q2

REPORT INFORMATION
  Report Type: 
  Country: None (occurrence: None)
  Receive Date: 20110401
  Receipt Date: 20110317
  Transmission Date: 20111010
  Serious: Yes (Other)
  Sender: FDA-Public Use
  Company Number: AR-GENENTECH-315850

PATIENT
  Sex: Female

DRUGS (3)
  1. LUCENTIS [Suspect]
     Indication: PRODUCT USED FOR UNKNOWN INDICATION
     Dosage: UNK
     Dates: start: 20100801
  2. LUCENTIS [Suspect]
     Dosage: UNK
     Dates: start: 20100901
  3. LUCENTIS [Suspect]
     Dosage: UNK
     Dates: start: 20110101

REACTIONS (3)
  - VISUAL ACUITY REDUCED [None]
  - BLINDNESS [None]
  - EYE ALLERGY [None]
